FAERS Safety Report 4496614-3 (Version None)
Quarter: 2004Q4

REPORT INFORMATION
  Report Type: 
  Country: None (occurrence: None)
  Receive Date: 20041108
  Receipt Date: 20041108
  Transmission Date: 20050328
  Serious: Yes (Hospitalization)
  Sender: FDA-Public Use
  Company Number: None

PATIENT
  Age: 42 Year
  Sex: Male
  Weight: 54.8852 kg

DRUGS (10)
  1. FLUOROURACIL [Suspect]
     Indication: COLON CANCER
     Dosage: 1660 MG X 4 DAYS IV
     Route: 042
     Dates: start: 20040712, end: 20040824
  2. CISPLATIN [Suspect]
     Indication: COLON CANCER
     Dosage: 124.5 MG X 1 DAY IV
     Route: 042
     Dates: start: 20040712, end: 20040824
  3. NEULASTA [Concomitant]
  4. DIFLUCAN [Concomitant]
  5. KELLY'S SOLUTION [Concomitant]
  6. AUGMENTIN '125' [Concomitant]
  7. EMEND [Concomitant]
  8. ATIVAN [Concomitant]
  9. DECADRON [Concomitant]
  10. ALOXI [Concomitant]

REACTIONS (5)
  - ARTHRALGIA [None]
  - BONE PAIN [None]
  - DEHYDRATION [None]
  - MARKEDLY REDUCED DIETARY INTAKE [None]
  - MYALGIA [None]
